FAERS Safety Report 4757123-7 (Version None)
Quarter: 2005Q3

REPORT INFORMATION
  Report Type: 
  Country: None (occurrence: None)
  Receive Date: 20050829
  Receipt Date: 20050817
  Transmission Date: 20060218
  Serious: Yes (Hospitalization, Other)
  Sender: FDA-Public Use
  Company Number: 2005103651

PATIENT
  Age: 78 Year
  Sex: Female
  Weight: 66.2252 kg

DRUGS (7)
  1. NORVASC [Suspect]
     Indication: BLOOD PRESSURE ABNORMAL
     Dosage: 5 MG (5 MG, 1 IN 1 D), ORAL
     Route: 048
     Dates: start: 20001101
  2. NORVASC [Suspect]
     Indication: HYPERTENSION
     Dosage: 5 MG (5 MG, 1 IN 1 D), ORAL
     Route: 048
     Dates: start: 20001101
  3. ACCUPRIL [Suspect]
     Indication: HYPERTENSION
     Dosage: 10 MG, ORAL
     Route: 048
     Dates: start: 20010101, end: 20050330
  4. ZETIA [Concomitant]
  5. WELCHOL [Concomitant]
  6. ACTONEL [Concomitant]
  7. NITROGLYCERIN [Concomitant]

REACTIONS (8)
  - BREAST INDURATION [None]
  - DYSARTHRIA [None]
  - HYPERLIPIDAEMIA [None]
  - HYPERTROPHY BREAST [None]
  - PHARYNGEAL OEDEMA [None]
  - SPEECH DISORDER [None]
  - SWOLLEN TONGUE [None]
  - UPPER RESPIRATORY TRACT INFECTION [None]
